FAERS Safety Report 15068227 (Version 2)
Quarter: 2018Q3

REPORT INFORMATION
  Report Type: Spontaneous
  Country: US (occurrence: US)
  Receive Date: 20180626
  Receipt Date: 20180831
  Transmission Date: 20181010
  Serious: Yes (Other)
  Sender: FDA-Public Use
  Company Number: US-ENDO PHARMACEUTICALS INC-2018-039843

PATIENT
  Sex: Male
  Weight: 90.7 kg

DRUGS (1)
  1. XIAFLEX [Suspect]
     Active Substance: COLLAGENASE CLOSTRIDIUM HISTOLYTICUM
     Indication: DUPUYTREN^S CONTRACTURE
     Dosage: UNK MG, 1 INJECTION
     Route: 026
     Dates: start: 2018

REACTIONS (5)
  - Joint dislocation [Not Recovered/Not Resolved]
  - Ligament rupture [Not Recovered/Not Resolved]
  - Injection site pain [Not Recovered/Not Resolved]
  - Laceration [Unknown]
  - Injection site swelling [Not Recovered/Not Resolved]

NARRATIVE: CASE EVENT DATE: 2018
